FAERS Safety Report 6596714-8 (Version None)
Quarter: 2010Q1

REPORT INFORMATION
  Report Type: 
  Country: None (occurrence: None)
  Receive Date: 20100223
  Receipt Date: 20100217
  Transmission Date: 20100710
  Serious: Yes (Death)
  Sender: FDA-Public Use
  Company Number: GB-TEVA-224896ISR

PATIENT
  Age: 3 Month
  Sex: Male
  Weight: 5.1 kg

DRUGS (2)
  1. DIAZEPAM [Suspect]
  2. METHADONE [Suspect]

REACTIONS (2)
  - MULTIPLE DRUG OVERDOSE [None]
  - RESPIRATORY DEPRESSION [None]
